FAERS Safety Report 13749943 (Version 1)
Quarter: 2017Q3

REPORT INFORMATION
  Report Type: Spontaneous
  Country: US (occurrence: US)
  Receive Date: 20170713
  Receipt Date: 20170713
  Transmission Date: 20171127
  Serious: Yes (Other)
  Sender: FDA-Public Use
  Company Number: US-ASTELLAS-2016US045639

PATIENT
  Age: 62 Year
  Sex: Female

DRUGS (2)
  1. MYRBETRIQ [Suspect]
     Active Substance: MIRABEGRON
     Dosage: HALF OF THE HALF TABLET, ONCE DAILY
     Route: 048
     Dates: end: 201611
  2. MYRBETRIQ [Suspect]
     Active Substance: MIRABEGRON
     Indication: BLADDER DISORDER
     Dosage: HALF TABLET, ONCE DAILY
     Route: 048
     Dates: start: 201611

REACTIONS (5)
  - Joint swelling [Recovered/Resolved]
  - Drug prescribing error [Unknown]
  - Wrong technique in product usage process [Unknown]
  - Off label use [Unknown]
  - Blood pressure increased [Recovered/Resolved]

NARRATIVE: CASE EVENT DATE: 201611
